FAERS Safety Report 8080290-7 (Version None)
Quarter: 2012Q1

REPORT INFORMATION
  Report Type: 
  Country: None (occurrence: None)
  Receive Date: 20120130
  Receipt Date: 20120120
  Transmission Date: 20120608
  Serious: Yes (Other)
  Sender: FDA-Public Use
  Company Number: US-BAYER-2011-121728

PATIENT
  Age: 72 Year
  Sex: Male

DRUGS (3)
  1. ANTIBIOTICS [Suspect]
  2. AVELOX [Suspect]
     Indication: PNEUMONIA
     Dosage: UNK
     Dates: start: 20091101, end: 20100201
  3. PREDNISONE TAB [Suspect]
     Indication: PNEUMONIA
     Dosage: UNK
     Dates: start: 20091201, end: 20100201

REACTIONS (7)
  - BACK PAIN [None]
  - ARTHRITIS [None]
  - ARTHRALGIA [None]
  - HYPOAESTHESIA [None]
  - MUSCULOSKELETAL PAIN [None]
  - PERIPHERAL NERVE INJURY [None]
  - PAIN IN EXTREMITY [None]
